FAERS Safety Report 23183876 (Version 1)
Quarter: 2023Q4

REPORT INFORMATION
  Report Type: Spontaneous
  Country: US (occurrence: US)
  Receive Date: 20231114
  Receipt Date: 20231114
  Transmission Date: 20240109
  Serious: No
  Sender: FDA-Public Use
  Company Number: US-Linical-39138

PATIENT
  Sex: Male

DRUGS (2)
  1. PHOTREXA VISCOUS [Suspect]
     Active Substance: RIBOFLAVIN 5^-PHOSPHATE SODIUM
     Indication: Keratoconus
     Route: 047
     Dates: start: 20230627, end: 20230627
  2. DEVICE [Suspect]
     Active Substance: DEVICE
     Indication: Keratoconus
     Dates: start: 20230627, end: 20230627

REACTIONS (1)
  - Impaired healing [Recovered/Resolved]

NARRATIVE: CASE EVENT DATE: 20230601
